FAERS Safety Report 4878686-7 (Version None)
Quarter: 2006Q1

REPORT INFORMATION
  Report Type: 
  Country: None (occurrence: None)
  Receive Date: 20060112
  Receipt Date: 20060102
  Transmission Date: 20060701
  Serious: Yes (Hospitalization)
  Sender: FDA-Public Use
  Company Number: FR-JNJFOC-20060100933

PATIENT
  Age: 53 Year
  Sex: Female

DRUGS (8)
  1. HALDOL [Suspect]
     Dosage: 2MG/ML
     Route: 048
  2. LEPTICUR [Suspect]
     Indication: DRUG USE FOR UNKNOWN INDICATION
     Route: 048
  3. LAMICTAL [Suspect]
     Route: 048
  4. LAMICTAL [Suspect]
     Indication: DRUG USE FOR UNKNOWN INDICATION
     Route: 048
  5. LOXAPAC [Suspect]
     Route: 048
  6. CLOPIXOL [Concomitant]
  7. TERCIAN [Concomitant]
  8. RIVOTRIL [Concomitant]

REACTIONS (7)
  - ALANINE AMINOTRANSFERASE INCREASED [None]
  - ASPARTATE AMINOTRANSFERASE INCREASED [None]
  - BLOOD CREATINE PHOSPHOKINASE INCREASED [None]
  - DERMATITIS BULLOUS [None]
  - PYREXIA [None]
  - RASH MACULOVESICULAR [None]
  - URTICARIA [None]
